FAERS Safety Report 22201386 (Version 1)
Quarter: 2023Q2

REPORT INFORMATION
  Report Type: Spontaneous
  Country: JP (occurrence: JP)
  Receive Date: 20230412
  Receipt Date: 20230412
  Transmission Date: 20230722
  Serious: Yes (Hospitalization)
  Sender: FDA-Public Use
  Company Number: JP-ViiV Healthcare Limited-69475

PATIENT

DRUGS (1)
  1. ZIAGEN [Suspect]
     Active Substance: ABACAVIR SULFATE
     Dosage: UNK

REACTIONS (1)
  - Rehabilitation therapy [Unknown]
